FAERS Safety Report 8062832 (Version 3)
Quarter: 2013Q3

REPORT INFORMATION
  Report Type: Report from Study
  Country: US (occurrence: US)
  Receive Date: 20110801
  Receipt Date: 20130724
  Transmission Date: 20140515
  Serious: Yes (Other)
  Sender: FDA-Public Use
  Company Number: US-UCBSA-016538

PATIENT
  Age: 31 Year
  Sex: Female

DRUGS (4)
  1. KEPPRA [Suspect]
     Indication: EPILEPSY
     Route: 048
     Dates: start: 200610
  2. FOLIC ACID [Concomitant]
     Indication: PREGNANCY
     Route: 048
     Dates: end: 20100622
  3. PROMETRIUM [Concomitant]
     Indication: PROGESTERONE DECREASED
     Route: 048
     Dates: start: 20090311, end: 20091212
  4. TERBUTALINE [Concomitant]
     Indication: PREMATURE LABOUR
     Dosage: 2.5MG Q4
     Route: 048
     Dates: start: 20100524, end: 20100622

REACTIONS (3)
  - Premature labour [Recovered/Resolved]
  - Progesterone decreased [Recovered/Resolved]
  - Pregnancy [Recovered/Resolved]
